FAERS Safety Report 5318538-1 (Version None)
Quarter: 2007Q2

REPORT INFORMATION
  Report Type: 
  Country: None (occurrence: None)
  Receive Date: 20070501
  Receipt Date: 20070419
  Transmission Date: 20071010
  Serious: Yes (Death)
  Sender: FDA-Public Use
  Company Number: JPI-P-001115

PATIENT
  Age: 87 Year
  Sex: Male

DRUGS (1)
  1. XYREM [Suspect]
     Indication: DEMENTIA
     Dosage: SEE IMAGE
     Route: 048

REACTIONS (1)
  - DEATH [None]
